FAERS Safety Report 23296683 (Version 1)
Quarter: 2023Q4

REPORT INFORMATION
  Report Type: Spontaneous
  Country: ES (occurrence: ES)
  Receive Date: 20231214
  Receipt Date: 20231214
  Transmission Date: 20240109
  Serious: Yes (Life-Threatening, Disabling)
  Sender: FDA-Public Use
  Company Number: None

PATIENT
  Age: 42 Year
  Sex: Male
  Weight: 77 kg

DRUGS (1)
  1. FINASTERIDE [Suspect]
     Active Substance: FINASTERIDE
     Indication: Alopecia
     Dosage: 1 MG EVERY 24 HOURS
     Route: 048
     Dates: start: 20091103, end: 20191103

REACTIONS (13)
  - Erectile dysfunction [Not Recovered/Not Resolved]
  - Dry skin [Not Recovered/Not Resolved]
  - Tinnitus [Not Recovered/Not Resolved]
  - Hypercalciuria [Not Recovered/Not Resolved]
  - PCO2 increased [Not Recovered/Not Resolved]
  - Dysbiosis [Not Recovered/Not Resolved]
  - Depression [Recovering/Resolving]
  - Suicidal behaviour [Recovering/Resolving]
  - Visual impairment [Not Recovered/Not Resolved]
  - Loss of libido [Not Recovered/Not Resolved]
  - Fatigue [Not Recovered/Not Resolved]
  - Osteopenia [Not Recovered/Not Resolved]
  - PO2 decreased [Not Recovered/Not Resolved]

NARRATIVE: CASE EVENT DATE: 20200102
